FAERS Safety Report 6355668-X (Version None)
Quarter: 2009Q3

REPORT INFORMATION
  Report Type: 
  Country: None (occurrence: None)
  Receive Date: 20090910
  Receipt Date: 20090828
  Transmission Date: 20100115
  Serious: Yes (Hospitalization, Other)
  Sender: FDA-Public Use
  Company Number: 2009AP003503

PATIENT
  Sex: Male

DRUGS (1)
  1. MYCOPHENOLATE MOFETIL [Suspect]

REACTIONS (3)
  - HYPERTENSION [None]
  - INTRASPINAL ABSCESS [None]
  - STAPHYLOCOCCAL SEPSIS [None]
